FAERS Safety Report 12645625 (Version 1)
Quarter: 2016Q3

REPORT INFORMATION
  Report Type: Spontaneous
  Country: DE (occurrence: DE)
  Receive Date: 20160811
  Receipt Date: 20160811
  Transmission Date: 20161109
  Serious: Yes (Other)
  Sender: FDA-Public Use
  Company Number: DE-SA-2016SA143540

PATIENT
  Age: 40 Year
  Sex: Female

DRUGS (1)
  1. CLEXANE [Suspect]
     Active Substance: ENOXAPARIN SODIUM
     Dosage: START DATE: 2 WEEKS PRIOR TO REPORT
     Route: 058

REACTIONS (3)
  - Shortened cervix [Unknown]
  - Abortion threatened [Unknown]
  - Exposure during pregnancy [Unknown]
